FAERS Safety Report 14993245 (Version 4)
Quarter: 2018Q3

REPORT INFORMATION
  Report Type: Report from Study
  Country: US (occurrence: US)
  Receive Date: 20180610
  Receipt Date: 20180809
  Transmission Date: 20181010
  Serious: Yes (Hospitalization, Other)
  Sender: FDA-Public Use
  Company Number: US-INCYTE CORPORATION-2018IN005461

PATIENT

DRUGS (5)
  1. JAKAFI [Suspect]
     Active Substance: RUXOLITINIB
     Indication: POLYCYTHAEMIA VERA
     Dosage: 10 MG, BID
     Route: 065
     Dates: start: 201804
  2. JAKAFI [Suspect]
     Active Substance: RUXOLITINIB
     Dosage: 20 MG, BID
     Route: 048
  3. HYDREA [Concomitant]
     Active Substance: HYDROXYUREA
     Indication: POLYCYTHAEMIA VERA
     Dosage: 500 MG, BID
     Route: 065
  4. JAKAFI [Suspect]
     Active Substance: RUXOLITINIB
     Dosage: 20 MG, BID
     Route: 048
  5. PLAVIX [Concomitant]
     Active Substance: CLOPIDOGREL BISULFATE
     Indication: PRODUCT USED FOR UNKNOWN INDICATION
     Dosage: UNK
     Route: 065

REACTIONS (20)
  - Extremity necrosis [Unknown]
  - Incorrect dose administered [Unknown]
  - Fatigue [Unknown]
  - Leukocytosis [Unknown]
  - Dyspnoea [Unknown]
  - Abdominal distension [Unknown]
  - Acute leukaemia [Unknown]
  - Peripheral ischaemia [Unknown]
  - Rhinorrhoea [Unknown]
  - Peripheral vascular disorder [Unknown]
  - Cough [Unknown]
  - Cellulitis [Unknown]
  - Cachexia [Unknown]
  - Myelofibrosis [Unknown]
  - Splenomegaly [Unknown]
  - Asthenia [Unknown]
  - Feeling hot [Unknown]
  - Wheezing [Unknown]
  - Malnutrition [Unknown]
  - Drug dose omission [Unknown]
